FAERS Safety Report 4867657-2 (Version None)
Quarter: 2005Q4

REPORT INFORMATION
  Report Type: 
  Country: None (occurrence: None)
  Receive Date: 20051222
  Receipt Date: 19990428
  Transmission Date: 20060501
  Serious: Yes (Death, Hospitalization)
  Sender: FDA-Public Use
  Company Number: 8-99047-025A

PATIENT
  Age: 82 Year
  Sex: Male
  Weight: 88.07 kg

DRUGS (7)
  1. MYLOTARG [Suspect]
     Indication: ACUTE MYELOID LEUKAEMIA
     Dosage: 9 MG/M (2), INTRAVENOUS
     Route: 042
     Dates: start: 19990202, end: 19990202
  2. CEFTAZIDIME SODIUM [Concomitant]
  3. VANCOMYCIN [Concomitant]
  4. AZITHROMYCIN [Concomitant]
  5. PEPCID (FAMOTIDINE) (PEPCID FAMOTIDINE)) [Concomitant]
  6. FUROSEMIDE [Concomitant]
  7. NYSTATIN (MYCOSTATIN) (NYSTATIN (MYCOSTATIN)) [Concomitant]

REACTIONS (13)
  - AGITATION [None]
  - CHILLS [None]
  - CONDITION AGGRAVATED [None]
  - CONFUSIONAL STATE [None]
  - FATIGUE [None]
  - HAEMATOCRIT DECREASED [None]
  - HAEMORRHAGE INTRACRANIAL [None]
  - HYPOTENSION [None]
  - LEUKOPENIA [None]
  - PYREXIA [None]
  - RED BLOOD CELL COUNT DECREASED [None]
  - SUBARACHNOID HAEMORRHAGE [None]
  - THROMBOCYTOPENIA [None]
